FAERS Safety Report 21984806 (Version 4)
Quarter: 2023Q4

REPORT INFORMATION
  Report Type: Spontaneous
  Country: CA (occurrence: CA)
  Receive Date: 20230213
  Receipt Date: 20231220
  Transmission Date: 20240109
  Serious: Yes (Other)
  Sender: FDA-Public Use
  Company Number: CA-PFIZER INC-202201317115

PATIENT
  Age: 56 Year
  Sex: Female
  Weight: 81.6 kg

DRUGS (5)
  1. ABRILADA [Suspect]
     Active Substance: ADALIMUMAB-AFZB
     Indication: Rheumatoid arthritis
     Dosage: 40 MG, EVERY 2 WEEKS
     Route: 058
     Dates: start: 20221102
  2. ABRILADA [Suspect]
     Active Substance: ADALIMUMAB-AFZB
     Dosage: 40 MG, EVERY 2 WEEKS
     Route: 058
  3. METHOTREXATE [Concomitant]
     Active Substance: METHOTREXATE
     Indication: Rheumatoid arthritis
     Dosage: 20 MG, WEEKLY
     Route: 048
  4. PLAQUENIL [Concomitant]
     Active Substance: HYDROXYCHLOROQUINE SULFATE
     Dosage: 400 MG, 1X/DAY
     Route: 065
  5. SULFASALAZINE [Concomitant]
     Active Substance: SULFASALAZINE
     Indication: Rheumatoid arthritis
     Dosage: 1 G, 1X/DAY
     Route: 065

REACTIONS (12)
  - Craniofacial fracture [Recovering/Resolving]
  - Loss of consciousness [Recovered/Resolved with Sequelae]
  - Fall [Unknown]
  - Concussion [Recovering/Resolving]
  - Skin laceration [Recovering/Resolving]
  - Lip injury [Recovering/Resolving]
  - Nasopharyngitis [Not Recovered/Not Resolved]
  - Alopecia [Not Recovered/Not Resolved]
  - Mouth ulceration [Unknown]
  - Oral pain [Unknown]
  - Tongue ulceration [Unknown]
  - Lip ulceration [Unknown]

NARRATIVE: CASE EVENT DATE: 20220101
